FAERS Safety Report 18792512 (Version 1)
Quarter: 2021Q1

REPORT INFORMATION
  Report Type: Spontaneous
  Country: CA (occurrence: CA)
  Receive Date: 20210127
  Receipt Date: 20210127
  Transmission Date: 20210419
  Serious: Yes (Hospitalization)
  Sender: FDA-Public Use
  Company Number: CA-TEVA-2021-CA-1871143

PATIENT
  Age: 73 Year
  Sex: Female

DRUGS (19)
  1. CINACALCET. [Concomitant]
     Active Substance: CINACALCET
  2. FRAGMIN [Concomitant]
     Active Substance: DALTEPARIN SODIUM
  3. METHOTRIMEPRAZINE [Concomitant]
     Active Substance: LEVOMEPROMAZINE
  4. PRAMIPEXOLE. [Concomitant]
     Active Substance: PRAMIPEXOLE
  5. ROSUVASTATIN. [Concomitant]
     Active Substance: ROSUVASTATIN
  6. CYANOCOBALAMIN. [Concomitant]
     Active Substance: CYANOCOBALAMIN
  7. OLANZAPINE. [Concomitant]
     Active Substance: OLANZAPINE
  8. RABEPRAZOLE [Concomitant]
     Active Substance: RABEPRAZOLE
  9. CITALOPRAM [Concomitant]
     Active Substance: CITALOPRAM HYDROBROMIDE
  10. DOMPERIDONE [Concomitant]
     Active Substance: DOMPERIDONE
  11. LORAZEPAM. [Concomitant]
     Active Substance: LORAZEPAM
  12. VENOFER [Concomitant]
     Active Substance: IRON SUCROSE
  13. SYNTHROID [Concomitant]
     Active Substance: LEVOTHYROXINE SODIUM
  14. MIDODRINE [Concomitant]
     Active Substance: MIDODRINE
  15. VITAMIN E [Concomitant]
     Active Substance: .ALPHA.-TOCOPHEROL
  16. TUMS [Concomitant]
     Active Substance: CALCIUM CARBONATE
  17. GABAPENTIN. [Suspect]
     Active Substance: GABAPENTIN
     Indication: RESTLESS LEGS SYNDROME
     Dosage: 100 MILLIGRAM DAILY;
  18. SEVELAMER [Concomitant]
     Active Substance: SEVELAMER
  19. TRAZODONE [Concomitant]
     Active Substance: TRAZODONE HYDROCHLORIDE

REACTIONS (9)
  - Confusional state [Unknown]
  - Metabolic encephalopathy [Unknown]
  - Depressed level of consciousness [Unknown]
  - Periorbital oedema [Unknown]
  - Fluid overload [Unknown]
  - Respiratory failure [Unknown]
  - Ataxia [Unknown]
  - Hypotension [Unknown]
  - Acidosis [Unknown]
